FAERS Safety Report 10686825 (Version 3)
Quarter: 2015Q1

REPORT INFORMATION
  Report Type: Spontaneous
  Country: GB (occurrence: GB)
  Receive Date: 20150101
  Receipt Date: 20150318
  Transmission Date: 20150720
  Serious: Yes (Other)
  Sender: FDA-Public Use
  Company Number: PHFR2014GB008967

PATIENT
  Sex: Female

DRUGS (4)
  1. CLOZARIL [Suspect]
     Active Substance: CLOZAPINE
     Indication: SCHIZOPHRENIA
     Dosage: UNK
     Route: 048
     Dates: start: 20110922
  2. LAMOTRIGINE. [Concomitant]
     Active Substance: LAMOTRIGINE
     Indication: MOOD ALTERED
     Dosage: 50 MG
     Route: 048
     Dates: start: 20120620
  3. ARIPIPRAZOLE. [Concomitant]
     Active Substance: ARIPIPRAZOLE
     Indication: PRODUCT USED FOR UNKNOWN INDICATION
     Dosage: 10 MG, QD
     Route: 048
     Dates: start: 20120311, end: 20120711
  4. SERTRALINE [Concomitant]
     Active Substance: SERTRALINE HYDROCHLORIDE
     Indication: DEPRESSION
     Dosage: 650 MG
     Route: 048
     Dates: start: 20111102

REACTIONS (11)
  - Rectal prolapse [Unknown]
  - Fear of death [Unknown]
  - Constipation [Unknown]
  - Urinary tract infection [Unknown]
  - Thyroid disorder [Unknown]
  - Arthritis [Unknown]
  - Lower respiratory tract infection [Unknown]
  - Faecal incontinence [Unknown]
  - Peripheral swelling [Unknown]
  - Urinary incontinence [Unknown]
  - Weight increased [Unknown]
